FAERS Safety Report 13450437 (Version 2)
Quarter: 2017Q2

REPORT INFORMATION
  Report Type: Report from Study
  Country: US (occurrence: US)
  Receive Date: 20170418
  Receipt Date: 20170419
  Transmission Date: 20170830
  Serious: Yes (Other)
  Sender: FDA-Public Use
  Company Number: US-ROCHE-1914530

PATIENT

DRUGS (2)
  1. OXALIPLATIN. [Suspect]
     Active Substance: OXALIPLATIN
     Indication: ADENOCARCINOMA PANCREAS
     Route: 065
  2. CAPECITABINE. [Suspect]
     Active Substance: CAPECITABINE
     Indication: ADENOCARCINOMA PANCREAS
     Route: 065

REACTIONS (15)
  - Haematemesis [Unknown]
  - Vomiting [Unknown]
  - Colitis [Unknown]
  - Palmar-plantar erythrodysaesthesia syndrome [Unknown]
  - Myocardial infarction [Unknown]
  - Fatigue [Unknown]
  - Gastrointestinal disorder [Unknown]
  - Neuropathy peripheral [Unknown]
  - Diarrhoea [Unknown]
  - Dehydration [Unknown]
  - Nausea [Unknown]
  - Pneumonia [Unknown]
  - Pyrexia [Unknown]
  - Abdominal pain [Unknown]
  - Mastitis [Unknown]
